FAERS Safety Report 4463331-5 (Version None)
Quarter: 2004Q3

REPORT INFORMATION
  Report Type: 
  Country: None (occurrence: None)
  Receive Date: 20040928
  Receipt Date: 20040916
  Transmission Date: 20050211
  Serious: Yes (Other)
  Sender: FDA-Public Use
  Company Number: 2004067582

PATIENT
  Age: 26 Year
  Sex: Female
  Weight: 49.8957 kg

DRUGS (4)
  1. VIAGRA [Suspect]
     Indication: ILL-DEFINED DISORDER
     Dosage: 100 MG (100 MG, 1 IN 1 D), ORAL
     Route: 048
     Dates: start: 20040915
  2. ALL OTHER THERAPEUTIC PRODUCTS (ALL OTHER THERAPEUTIC PRODUCTS) [Suspect]
     Indication: ILL-DEFINED DISORDER
  3. PETIBELLE FILMTABLETTEN (DROSPIRENONE, ETHINYLESTRADIOL) [Concomitant]
  4. TERBINAFINE HCL [Concomitant]

REACTIONS (5)
  - FLUSHING [None]
  - HOT FLUSH [None]
  - HYPERSENSITIVITY [None]
  - NAUSEA [None]
  - SELF-MEDICATION [None]
